FAERS Safety Report 6540240-9 (Version None)
Quarter: 2010Q1

REPORT INFORMATION
  Report Type: 
  Country: None (occurrence: None)
  Receive Date: 20100115
  Receipt Date: 20100111
  Transmission Date: 20100710
  Serious: Yes (Death)
  Sender: FDA-Public Use
  Company Number: FR-ASTRAZENECA-2010SE01127

PATIENT
  Age: 50 Year
  Sex: Male

DRUGS (13)
  1. DIPRIVAN [Suspect]
     Indication: GENERAL ANAESTHESIA
     Route: 042
     Dates: start: 20090915
  2. PROPRANOLOL [Suspect]
     Route: 048
  3. FLECAINE [Suspect]
     Route: 048
  4. APROVEL [Suspect]
     Route: 048
     Dates: end: 20090914
  5. EUPRESSYL [Suspect]
     Route: 048
  6. ALLOPURINOL [Suspect]
     Indication: GOUT
     Route: 048
     Dates: end: 20090915
  7. CEFAZOLIN [Suspect]
     Indication: ANTIBIOTIC PROPHYLAXIS
     Route: 042
     Dates: start: 20090915
  8. SUFENTANIL CITRATE [Suspect]
     Indication: GENERAL ANAESTHESIA
     Route: 042
     Dates: start: 20090915
  9. TRACRIUM [Suspect]
     Indication: GENERAL ANAESTHESIA
     Route: 042
     Dates: start: 20090915
  10. DESFLURANNE [Suspect]
     Indication: GENERAL ANAESTHESIA
     Route: 042
     Dates: start: 20090915
  11. TAHOR [Suspect]
     Indication: DYSLIPIDAEMIA
     Route: 048
     Dates: end: 20090915
  12. MIMPARA [Suspect]
     Route: 048
     Dates: end: 20090915
  13. PANTOPRAZOLE [Suspect]
     Route: 048
     Dates: end: 20090915

REACTIONS (2)
  - HYPOTENSION [None]
  - VENTRICULAR ARRHYTHMIA [None]
